FAERS Safety Report 5195631-8 (Version None)
Quarter: 2006Q4

REPORT INFORMATION
  Report Type: 
  Country: None (occurrence: None)
  Receive Date: 20061222
  Receipt Date: 20061222
  Transmission Date: 20070319
  Serious: Yes (Hospitalization, Other)
  Sender: FDA-Public Use
  Company Number: None

PATIENT
  Sex: Male
  Weight: 95.2554 kg

DRUGS (4)
  1. BIVALIRUDIN .75MG/KG BOLUS FOLLOWED BY 180 UG/KG BOLUS X 2 EPTIFIBATID [Suspect]
     Indication: ANTICOAGULANT THERAPY
     Dosage: 14.25 CC BOLUS/33.25 CC IV INF
     Route: 042
     Dates: start: 20061218, end: 20061218
  2. BIVALIRUDIN .75MG/KG BOLUS FOLLOWED BY 180 UG/KG BOLUS X 2 EPTIFIBATID [Suspect]
     Indication: PERCUTANEOUS CORONARY INTERVENTION
     Dosage: 14.25 CC BOLUS/33.25 CC IV INF
     Route: 042
     Dates: start: 20061218, end: 20061218
  3. INTEGRILIN [Suspect]
     Indication: PERCUTANEOUS CORONARY INTERVENTION
     Dosage: 8.5ML BOLUS/15.0ML/HR IVDRIP X18HR
     Route: 041
     Dates: start: 20061218, end: 20061218
  4. INTEGRILIN [Suspect]
     Indication: PLATELET AGGREGATION INHIBITION
     Dosage: 8.5ML BOLUS/15.0ML/HR IVDRIP X18HR
     Route: 041
     Dates: start: 20061218, end: 20061218

REACTIONS (5)
  - ARTERIAL DISORDER [None]
  - COMPLICATION OF DEVICE INSERTION [None]
  - HAEMATOCRIT DECREASED [None]
  - MEDICAL DEVICE COMPLICATION [None]
  - RETROPERITONEAL HAEMATOMA [None]
